FAERS Safety Report 4510375-0 (Version None)
Quarter: 2004Q4

REPORT INFORMATION
  Report Type: 
  Country: None (occurrence: None)
  Receive Date: 20041119
  Receipt Date: 20041103
  Transmission Date: 20050328
  Serious: Yes (Death)
  Sender: FDA-Public Use
  Company Number: DE_041014560

PATIENT
  Age: 79 Year
  Sex: Female

DRUGS (3)
  1. ZYPREXA [Suspect]
     Indication: MAJOR DEPRESSION
     Dosage: 5 MG DAY
     Route: 048
     Dates: start: 20040201
  2. AQUAPHOR TABLET (XIPAMIDE) [Concomitant]
  3. REMERGIL (MIRTAZAPINE ORIFARM) [Concomitant]

REACTIONS (1)
  - SUDDEN CARDIAC DEATH [None]
